FAERS Safety Report 18945122 (Version 1)
Quarter: 2021Q1

REPORT INFORMATION
  Report Type: Spontaneous
  Country: US (occurrence: US)
  Receive Date: 20210226
  Receipt Date: 20210226
  Transmission Date: 20210420
  Serious: Yes (Other)
  Sender: FDA-Public Use
  Company Number: US-ELI_LILLY_AND_COMPANY-US202102009519

PATIENT
  Sex: Female

DRUGS (2)
  1. PRASUGREL. [Suspect]
     Active Substance: PRASUGREL
     Indication: PRODUCT USED FOR UNKNOWN INDICATION
     Dosage: UNK UNK, UNKNOWN
     Route: 048
  2. EFFIENT [Suspect]
     Active Substance: PRASUGREL HYDROCHLORIDE
     Indication: PRODUCT USED FOR UNKNOWN INDICATION
     Dosage: UNK UNK, UNKNOWN
     Route: 048

REACTIONS (6)
  - Formication [Unknown]
  - Fall [Recovered/Resolved]
  - Pain [Unknown]
  - Thrombosis [Unknown]
  - Pelvic fracture [Recovered/Resolved]
  - Myocardial infarction [Unknown]

NARRATIVE: CASE EVENT DATE: 202009
